FAERS Safety Report 5718189-0 (Version None)
Quarter: 2008Q2

REPORT INFORMATION
  Report Type: 
  Country: None (occurrence: None)
  Receive Date: 20080425
  Receipt Date: 20080416
  Transmission Date: 20081010
  Serious: Yes (Other)
  Sender: FDA-Public Use
  Company Number: FR-ROCHE-559308

PATIENT
  Sex: Female

DRUGS (5)
  1. ROCEPHIN [Suspect]
     Indication: DRUG USE FOR UNKNOWN INDICATION
     Dosage: DOSAGE: ONE DOSE DAILY (QD)
     Route: 030
     Dates: start: 20080130, end: 20080202
  2. TAZOCILLINE [Suspect]
     Indication: DRUG USE FOR UNKNOWN INDICATION
     Dosage: FORM: INJECTABLE SOLUTION
     Route: 042
     Dates: end: 20080203
  3. TAZOCILLINE [Suspect]
     Dosage: FORM: INJECTABLE SOLUTION
     Route: 042
     Dates: end: 20080203
  4. AUGMENTIN '125' [Suspect]
     Indication: DRUG USE FOR UNKNOWN INDICATION
     Route: 048
     Dates: start: 20080128, end: 20080130
  5. AUGMENTIN '125' [Suspect]
     Route: 048
     Dates: start: 20080128, end: 20080130

REACTIONS (5)
  - PRURIGO [None]
  - PRURITUS [None]
  - RASH [None]
  - RASH ERYTHEMATOUS [None]
  - STOMATITIS [None]
